FAERS Safety Report 5965123-4 (Version None)
Quarter: 2008Q4

REPORT INFORMATION
  Report Type: 
  Country: None (occurrence: None)
  Receive Date: 20081125
  Receipt Date: 20081117
  Transmission Date: 20090506
  Serious: Yes (Hospitalization)
  Sender: FDA-Public Use
  Company Number: JP-JNJFOC-20080905325

PATIENT
  Sex: Female
  Weight: 46 kg

DRUGS (31)
  1. REMICADE [Suspect]
     Route: 042
  2. REMICADE [Suspect]
     Route: 042
  3. REMICADE [Suspect]
     Route: 042
  4. REMICADE [Suspect]
     Route: 042
  5. REMICADE [Suspect]
     Route: 042
  6. REMICADE [Suspect]
     Route: 042
  7. REMICADE [Suspect]
     Route: 042
  8. REMICADE [Suspect]
     Route: 042
  9. REMICADE [Suspect]
     Route: 042
  10. REMICADE [Suspect]
     Route: 042
  11. REMICADE [Suspect]
     Indication: RHEUMATOID ARTHRITIS
     Route: 042
  12. KENACORT [Suspect]
     Indication: RHEUMATOID ARTHRITIS
     Dosage: ROUTE OF ADMINISTRATION: ^IR^
  13. RHEUMATREX [Suspect]
     Route: 048
  14. RHEUMATREX [Suspect]
     Route: 048
  15. RHEUMATREX [Suspect]
     Route: 048
  16. RHEUMATREX [Suspect]
     Indication: RHEUMATOID ARTHRITIS
     Route: 048
  17. ARTZ [Concomitant]
     Indication: RHEUMATOID ARTHRITIS
     Dosage: ROUTE OF ADMINISTRATION: ^IR^
  18. TAKEPRON [Concomitant]
     Indication: PROPHYLAXIS AGAINST GASTROINTESTINAL ULCER
     Route: 048
  19. GANATON [Concomitant]
     Indication: GASTRITIS
     Route: 048
  20. MYSLEE [Concomitant]
     Indication: INSOMNIA
     Route: 048
  21. LOXONIN [Concomitant]
     Indication: RHEUMATOID ARTHRITIS
     Route: 048
  22. GLAKAY [Concomitant]
     Indication: OSTEOPOROSIS
     Route: 048
  23. ROCALTROL [Concomitant]
     Indication: OSTEOPOROSIS
     Dosage: DOSE: 0.5 ^RG'
     Route: 048
  24. BENET [Concomitant]
     Indication: OSTEOPOROSIS
     Route: 048
  25. FOLIAMIN [Concomitant]
     Indication: PROPHYLAXIS
     Route: 048
  26. HYTHIOL [Concomitant]
     Indication: WHITE BLOOD CELL COUNT DECREASED
     Route: 048
  27. ALESION [Concomitant]
     Indication: HYPERSENSITIVITY
     Route: 048
  28. ADRENAL HORMONE PREPARATIONS [Concomitant]
     Indication: RHEUMATOID ARTHRITIS
     Route: 065
  29. BREDININ [Concomitant]
     Indication: ARTHRALGIA
     Route: 048
  30. URSO 250 [Concomitant]
     Indication: HEPATIC FUNCTION ABNORMAL
     Route: 048
  31. PROHEPARUM [Concomitant]
     Indication: HEPATIC FUNCTION ABNORMAL
     Route: 048

REACTIONS (2)
  - HERPES ZOSTER [None]
  - HUMERUS FRACTURE [None]
